FAERS Safety Report 25491692 (Version 2)
Quarter: 2025Q4

REPORT INFORMATION
  Report Type: Report from Study
  Country: US (occurrence: US)
  Receive Date: 20250630
  Receipt Date: 20251020
  Transmission Date: 20260117
  Serious: Yes (Disabling)
  Sender: ABBVIE
  Company Number: US-ABBVIE-5618542

PATIENT
  Age: 67 Year
  Sex: Female

DRUGS (3)
  1. HUMIRA [Suspect]
     Active Substance: ADALIMUMAB
     Indication: Rheumatoid arthritis
     Dosage: CITRATE FREE
     Route: 058
     Dates: start: 20230603
  2. HUMIRA [Suspect]
     Active Substance: ADALIMUMAB
     Dosage: CITRATE FREE
     Route: 058
     Dates: start: 202402
  3. HUMIRA [Suspect]
     Active Substance: ADALIMUMAB
     Dosage: CITRATE FREE
     Route: 058
     Dates: start: 20251014

REACTIONS (8)
  - Intervertebral disc protrusion [Not Recovered/Not Resolved]
  - Osteoarthritis [Unknown]
  - Muscle spasms [Recovering/Resolving]
  - Back pain [Unknown]
  - Illness [Unknown]
  - Limb discomfort [Unknown]
  - Nerve oedema [Unknown]
  - Fall [Unknown]

NARRATIVE: CASE EVENT DATE: 20250101
